FAERS Safety Report 8880462 (Version 1)
Quarter: 2012Q4

REPORT INFORMATION
  Report Type: 
  Country: US (occurrence: US)
  Receive Date: 20121031
  Receipt Date: 20121031
  Transmission Date: 20130627
  Serious: No
  Sender: FDA-Public Use
  Company Number: US-009507513-1210USA011173

PATIENT
  Sex: Female

DRUGS (1)
  1. ZETIA [Suspect]
     Dosage: UNK
     Route: 048
     Dates: start: 20121005, end: 20121017

REACTIONS (1)
  - Amnesia [Not Recovered/Not Resolved]
